FAERS Safety Report 20785681 (Version 1)
Quarter: 2022Q2

REPORT INFORMATION
  Report Type: Spontaneous
  Country: US (occurrence: None)
  Receive Date: 20220504
  Receipt Date: 20220504
  Transmission Date: 20220721
  Serious: No
  Sender: FDA-Public Use
  Company Number: US-ROCHE-2837173

PATIENT
  Age: 26 Year
  Sex: Female
  Weight: 75.818 kg

DRUGS (4)
  1. OCREVUS [Suspect]
     Active Substance: OCRELIZUMAB
     Indication: Central nervous system lupus
     Route: 042
     Dates: start: 20210518
  2. RITUXAN [Suspect]
     Active Substance: RITUXIMAB
     Indication: Central nervous system lupus
     Route: 065
     Dates: start: 201703
  3. BENADRYL [Concomitant]
     Active Substance: DIPHENHYDRAMINE HYDROCHLORIDE
  4. PEPCID [Concomitant]
     Active Substance: FAMOTIDINE

REACTIONS (24)
  - Serum sickness [Unknown]
  - Throat irritation [Unknown]
  - Pruritus [Unknown]
  - Hypertrichosis [Unknown]
  - Cough [Unknown]
  - Erythema [Unknown]
  - Skin burning sensation [Unknown]
  - Nausea [Unknown]
  - Retching [Unknown]
  - Heart rate increased [Unknown]
  - Feeling abnormal [Unknown]
  - Paraesthesia [Unknown]
  - Tremor [Unknown]
  - Diarrhoea [Unknown]
  - Rash papular [Unknown]
  - Off label use [Unknown]
  - Off label use [Unknown]
  - Rash [Unknown]
  - Swelling face [Not Recovered/Not Resolved]
  - Oropharyngeal discomfort [Not Recovered/Not Resolved]
  - Urticaria [Not Recovered/Not Resolved]
  - Glossodynia [Recovered/Resolved]
  - Anxiety [Unknown]
  - Enlarged uvula [Not Recovered/Not Resolved]

NARRATIVE: CASE EVENT DATE: 20210518
